FAERS Safety Report 24996084 (Version 1)
Quarter: 2025Q1

REPORT INFORMATION
  Report Type: Spontaneous
  Country: US (occurrence: US)
  Receive Date: 20250221
  Receipt Date: 20250221
  Transmission Date: 20250409
  Serious: No
  Sender: CATALYST PHARMA
  Company Number: US-CATALYST PHARMACEUTICALS-US-CATA-25-00043

PATIENT
  Age: 25 Year
  Sex: Male
  Weight: 82.884 kg

DRUGS (13)
  1. AGAMREE [Suspect]
     Active Substance: VAMOROLONE
     Indication: Duchenne muscular dystrophy
     Dosage: 7.5 ML DAILY
     Route: 048
     Dates: start: 20241217
  2. ENALAPRIL [Concomitant]
     Active Substance: ENALAPRIL
     Indication: Cardiovascular disorder
     Dosage: 10 MG TWICE A DAY
     Route: 065
  3. EPLERENONE [Concomitant]
     Active Substance: EPLERENONE
     Indication: Cardiovascular disorder
     Dosage: 25 MG ONCE A DAY
     Route: 065
  4. VITAMIN D3 [Concomitant]
     Active Substance: CHOLECALCIFEROL
     Indication: Bone disorder
     Dosage: 125 MCG (5000 UNITS) ONCE A DAY
     Route: 065
  5. IFETROBAN [Concomitant]
     Active Substance: IFETROBAN
     Indication: Duchenne muscular dystrophy
     Dosage: 300 MG ONCE A DAY
     Route: 065
  6. IFETROBAN [Concomitant]
     Active Substance: IFETROBAN
     Dosage: 50 MILLIGRAM, QD
     Route: 065
  7. AMONDYS [Concomitant]
     Indication: Duchenne muscular dystrophy
     Dosage: 100 MG/2 ML ONCE A WEEK
     Route: 042
  8. LATANOPROST [Concomitant]
     Active Substance: LATANOPROST
     Indication: Glaucoma
     Dosage: ONE DROP IN BOTH EYES ONCE A DAY
     Route: 047
  9. DORZOLAMIDE TIMOLOL MALEATE [Concomitant]
     Indication: Glaucoma
     Dosage: ONE DROP IN BOTH EYES ONCE A DAY
     Route: 047
  10. IDEBENONE [Concomitant]
     Active Substance: IDEBENONE
     Indication: Duchenne muscular dystrophy
     Dosage: 700 MG ONCE A DAY
     Route: 048
  11. CALCIUM\CHOLECALCIFEROL [Concomitant]
     Active Substance: CALCIUM\CHOLECALCIFEROL
     Indication: Bone disorder
     Dosage: 600 MG-12.5 MCG ONCE A DAY
     Route: 048
  12. PREDNISONE [Concomitant]
     Active Substance: PREDNISONE
     Indication: Duchenne muscular dystrophy
     Dosage: 40 MG DAILY
     Route: 065
  13. PREDNISONE [Concomitant]
     Active Substance: PREDNISONE
     Dosage: 10 MILLIGRAM, QD
     Route: 065

REACTIONS (2)
  - Paraesthesia [Recovered/Resolved]
  - Abdominal pain upper [Not Recovered/Not Resolved]

NARRATIVE: CASE EVENT DATE: 20241201
